FAERS Safety Report 18641120 (Version 1)
Quarter: 2020Q4

REPORT INFORMATION
  Report Type: Spontaneous
  Country: FR (occurrence: FR)
  Receive Date: 20201221
  Receipt Date: 20201221
  Transmission Date: 20210114
  Serious: Yes (Hospitalization)
  Sender: FDA-Public Use
  Company Number: FR-TEVA-2020-FR-1859619

PATIENT
  Age: 31 Year
  Sex: Male
  Weight: 58.4 kg

DRUGS (7)
  1. OXCARBAZEPINE. [Suspect]
     Active Substance: OXCARBAZEPINE
     Indication: PRODUCT ADMINISTRATION ERROR
     Dosage: 150 MG
     Route: 048
     Dates: start: 20200713, end: 20200713
  2. CLOZAPINE. [Suspect]
     Active Substance: CLOZAPINE
     Indication: PRODUCT ADMINISTRATION ERROR
     Dosage: 200 MG
     Route: 048
     Dates: start: 20200713, end: 20200713
  3. LOXAPAC 100 MG, COMPRIME PELLICULE [Suspect]
     Active Substance: LOXAPINE
     Indication: PRODUCT ADMINISTRATION ERROR
     Dosage: 2 DOSAGE FORM
     Route: 048
     Dates: start: 20200713, end: 20200713
  4. PARKINANE L P 5 MG, GELULE A LIBERATION PROLONGEE [Suspect]
     Active Substance: TRIHEXYPHENIDYL HYDROCHLORIDE
     Indication: PRODUCT ADMINISTRATION ERROR
     Dosage: 1 DOSAGE FORM
     Route: 048
     Dates: start: 20200713, end: 20200713
  5. TRIMEBUTINE [Suspect]
     Active Substance: TRIMEBUTINE
     Indication: PRODUCT ADMINISTRATION ERROR
     Dosage: 200 MG
     Route: 048
     Dates: start: 20200713, end: 20200713
  6. PRAZEPAM [Suspect]
     Active Substance: PRAZEPAM
     Indication: PRODUCT ADMINISTRATION ERROR
     Dosage: 5 MG
     Route: 048
     Dates: start: 20200713, end: 20200713
  7. MOVICOL [Suspect]
     Active Substance: POLYETHYLENE GLYCOL 3350\POTASSIUM CHLORIDE\SODIUM BICARBONATE\SODIUM CHLORIDE
     Indication: PRODUCT ADMINISTRATION ERROR
     Dosage: 2 DOSAGE FORM
     Route: 048
     Dates: start: 20200713, end: 20200713

REACTIONS (9)
  - Acute respiratory failure [Recovered/Resolved]
  - Pneumonia aspiration [Recovered/Resolved]
  - Agitation [Recovered/Resolved]
  - Pyrexia [Recovered/Resolved]
  - Oxygen saturation decreased [Recovered/Resolved]
  - Tachycardia [Recovered/Resolved]
  - Wrong patient received product [Recovered/Resolved]
  - Disturbance in attention [Recovered/Resolved]
  - Product administration error [Recovered/Resolved]

NARRATIVE: CASE EVENT DATE: 20200713
